FAERS Safety Report 21594345 (Version 1)
Quarter: 2022Q4

REPORT INFORMATION
  Report Type: Spontaneous
  Country: US (occurrence: None)
  Receive Date: 20221115
  Receipt Date: 20221115
  Transmission Date: 20230113
  Serious: Yes (Other)
  Sender: FDA-Public Use
  Company Number: US-ROCHE-3175155

PATIENT
  Age: 71 Year

DRUGS (1)
  1. VABYSMO [Suspect]
     Active Substance: FARICIMAB-SVOA
     Indication: Neovascular age-related macular degeneration
     Dosage: DATE OF LAST TREATMENT BEFORE AE: 17/JUN/2022
     Route: 065

REACTIONS (1)
  - Uveitis [Recovering/Resolving]
